FAERS Safety Report 24839191 (Version 1)
Quarter: 2025Q1

REPORT INFORMATION
  Report Type: Spontaneous
  Country: FR (occurrence: FR)
  Receive Date: 20250114
  Receipt Date: 20250114
  Transmission Date: 20250409
  Serious: Yes (Hospitalization)
  Sender: IDORSIA PHARMACEUTICALS
  Company Number: None

PATIENT
  Age: 51 Year
  Sex: Male

DRUGS (4)
  1. QUVIVIQ [Suspect]
     Active Substance: DARIDOREXANT
     Indication: Toxicity to various agents
     Route: 048
     Dates: start: 20241229, end: 20241229
  2. TRAMADOL [Suspect]
     Active Substance: TRAMADOL
     Indication: Toxicity to various agents
     Route: 048
     Dates: start: 20241229, end: 20241229
  3. CHLORPROMAZINE [Suspect]
     Active Substance: CHLORPROMAZINE
     Indication: Toxicity to various agents
     Route: 048
     Dates: start: 20241229, end: 20241229
  4. CARBAMAZEPINE [Suspect]
     Active Substance: CARBAMAZEPINE
     Indication: Toxicity to various agents
     Route: 048
     Dates: start: 20241229, end: 20241229

REACTIONS (2)
  - Dyskinesia [Recovering/Resolving]
  - Drug abuse [Recovering/Resolving]
